FAERS Safety Report 8584675-1 (Version None)
Quarter: 2012Q3

REPORT INFORMATION
  Report Type: 
  Country: None (occurrence: None)
  Receive Date: 20120810
  Receipt Date: 20120803
  Transmission Date: 20120928
  Serious: Yes (Hospitalization, Other)
  Sender: FDA-Public Use
  Company Number: US-PFIZER INC-2012179180

PATIENT
  Age: 39 Year
  Sex: Male
  Weight: 57 kg

DRUGS (9)
  1. ROCEPHIN [Concomitant]
     Indication: LYME DISEASE
     Dosage: UNK
     Route: 042
  2. CELEBREX [Concomitant]
     Dosage: 200 MG, 2X/DAY
  3. VANCOMYCIN [Concomitant]
     Indication: LYME DISEASE
     Dosage: UNK
     Route: 042
  4. SYNTHROID [Concomitant]
     Dosage: 0.088 UG, UNK
  5. CELEXA [Concomitant]
     Dosage: 20 MG, 1X/DAY
  6. DILANTIN [Interacting]
     Indication: CONVULSION PROPHYLAXIS
     Dosage: 100 MG, 3X/DAY
     Route: 048
     Dates: start: 20120301, end: 20120723
  7. DOXYCYCLINE HYCLATE [Suspect]
     Indication: LYME DISEASE
     Dosage: UNK
     Route: 042
     Dates: start: 20120101, end: 20120101
  8. ARMODAFINIL [Interacting]
     Indication: FUNGAL INFECTION
     Dosage: 200 MG, 2X/DAY
     Route: 048
     Dates: start: 20120719, end: 20120723
  9. ZITHROMAX [Concomitant]
     Dosage: 250MG ONCE A DAY ON MONDAYS, WEDNESDAYS AND TWO TABLETS UNKNOWN FREQUENCY ON FRIDAY
     Route: 048

REACTIONS (12)
  - ATAXIA [None]
  - DIZZINESS [None]
  - HYPERHIDROSIS [None]
  - DRUG LEVEL INCREASED [None]
  - TOXICITY TO VARIOUS AGENTS [None]
  - COORDINATION ABNORMAL [None]
  - VOMITING [None]
  - DRUG INTERACTION [None]
  - FUNGAL INFECTION [None]
  - WEIGHT DECREASED [None]
  - NAUSEA [None]
  - PANCREATITIS [None]
